FAERS Safety Report 5875951-1 (Version None)
Quarter: 2008Q3

REPORT INFORMATION
  Report Type: 
  Country: None (occurrence: None)
  Receive Date: 20080910
  Receipt Date: 20080829
  Transmission Date: 20090109
  Serious: Yes (Other)
  Sender: FDA-Public Use
  Company Number: IT-RANBAXY-2008RR-17699

PATIENT

DRUGS (1)
  1. SIMVASTATINA RANBAXY 5MG COMPRESSE RIVESTITE CON FILM [Suspect]

REACTIONS (3)
  - HALLUCINATION [None]
  - INSOMNIA [None]
  - MYALGIA [None]
